FAERS Safety Report 5092052-3 (Version None)
Quarter: 2006Q3

REPORT INFORMATION
  Report Type: 
  Country: None (occurrence: None)
  Receive Date: 20060727
  Receipt Date: 20060404
  Transmission Date: 20061208
  Serious: Yes (Other)
  Sender: FDA-Public Use
  Company Number: 2006048000

PATIENT
  Age: 68 Year
  Sex: Female
  Weight: 89.3586 kg

DRUGS (7)
  1. LYRICA [Suspect]
     Indication: PAIN
     Dosage: 200 MG (200 MG,1 IN 1 D)
     Dates: start: 20050101
  2. CYMBALTA [Suspect]
     Indication: PAIN
     Dates: start: 20050101, end: 20050101
  3. SYNTHROID [Concomitant]
  4. DIOVAN [Concomitant]
  5. PROVIGIL [Concomitant]
  6. PERCOCET [Concomitant]
  7. ASPIRIN [Concomitant]

REACTIONS (10)
  - ABDOMINAL PAIN UPPER [None]
  - DIARRHOEA [None]
  - DIZZINESS [None]
  - DRUG INEFFECTIVE [None]
  - FEELING ABNORMAL [None]
  - HALLUCINATION, AUDITORY [None]
  - MENTAL DISORDER [None]
  - NIGHTMARE [None]
  - PAIN [None]
  - SOMNOLENCE [None]
